FAERS Safety Report 17686982 (Version 2)
Quarter: 2020Q2

REPORT INFORMATION
  Report Type: Spontaneous
  Country: FR (occurrence: FR)
  Receive Date: 20200421
  Receipt Date: 20200605
  Transmission Date: 20200714
  Serious: Yes (Hospitalization)
  Sender: FDA-Public Use
  Company Number: FR-CELLTRION INC.-2020FR021697

PATIENT

DRUGS (2)
  1. RITUXIMAB (UNKNOWN) [Suspect]
     Active Substance: RITUXIMAB
     Indication: CHRONIC KIDNEY DISEASE
  2. RITUXIMAB (UNKNOWN) [Suspect]
     Active Substance: RITUXIMAB
     Indication: GLOMERULONEPHRITIS MEMBRANOUS
     Route: 042

REACTIONS (3)
  - Off label use [Unknown]
  - Intentional product use issue [Unknown]
  - Chronic obstructive pulmonary disease [Unknown]
